FAERS Safety Report 7825444-7 (Version None)
Quarter: 2011Q4

REPORT INFORMATION
  Report Type: 
  Country: None (occurrence: None)
  Receive Date: 20111019
  Receipt Date: 20111005
  Transmission Date: 20120403
  Serious: Yes (Hospitalization)
  Sender: FDA-Public Use
  Company Number: ES-WATSON-2011-16447

PATIENT
  Age: 81 Year
  Sex: Female

DRUGS (1)
  1. METFORMIN HCL [Suspect]
     Indication: TYPE 2 DIABETES MELLITUS
     Dosage: 850 MG, Q8H

REACTIONS (4)
  - FLUID OVERLOAD [None]
  - HAEMODYNAMIC INSTABILITY [None]
  - HYPERLACTACIDAEMIA [None]
  - DRUG LEVEL ABOVE THERAPEUTIC [None]
